FAERS Safety Report 12777666 (Version 1)
Quarter: 2016Q3

REPORT INFORMATION
  Report Type: Spontaneous
  Country: FR (occurrence: FR)
  Receive Date: 20160924
  Receipt Date: 20160924
  Transmission Date: 20161109
  Serious: Yes (Hospitalization)
  Sender: FDA-Public Use
  Company Number: FR-009507513-1609FRA010112

PATIENT
  Age: 64 Year
  Sex: Female

DRUGS (4)
  1. ACUPAN [Suspect]
     Active Substance: NEFOPAM HYDROCHLORIDE
     Dosage: UNK
     Dates: start: 20150920
  2. INVANZ [Suspect]
     Active Substance: ERTAPENEM SODIUM
     Indication: PYELONEPHRITIS
     Dosage: 1 DF, QD
     Dates: start: 20150915, end: 20150922
  3. DIFFU-K [Suspect]
     Active Substance: POTASSIUM CHLORIDE
     Dosage: UNK
     Dates: start: 20150914, end: 20150922
  4. OROZAMUDOL [Suspect]
     Active Substance: TRAMADOL
     Dosage: UNK
     Dates: start: 20150921, end: 20150923

REACTIONS (2)
  - Encephalopathy [Recovered/Resolved with Sequelae]
  - Cerebellar syndrome [Recovered/Resolved]

NARRATIVE: CASE EVENT DATE: 20160922
